FAERS Safety Report 21604674 (Version 1)
Quarter: 2022Q4

REPORT INFORMATION
  Report Type: Report from Study
  Country: IT (occurrence: IT)
  Receive Date: 20221116
  Receipt Date: 20221116
  Transmission Date: 20230112
  Serious: Yes (Hospitalization, Other)
  Sender: FDA-Public Use
  Company Number: None

PATIENT
  Age: 3 Year
  Sex: Male
  Weight: 15 kg

DRUGS (7)
  1. VINCRISTINE [Suspect]
     Active Substance: VINCRISTINE
     Indication: Neuroblastoma
     Dosage: 0.94 MG IN DATA 16, 26/07, 5, 16, 26 /08, 05, 15, 26/09/22  , DURATION : 72 DAYS
     Dates: start: 20220716, end: 20220926
  2. ETOPOSIDE [Suspect]
     Active Substance: ETOPOSIDE
     Indication: Neuroblastoma
     Dosage: 110 MG IN DATA 16, 17/07, 5, 6, 26, 27/08, 15, 16/09/22
     Dates: start: 20220716, end: 20220916
  3. CYCLOPHOSPHAMIDE [Suspect]
     Active Substance: CYCLOPHOSPHAMIDE
     Indication: Neuroblastoma
     Dosage: 660 MG IN DATA 5, 6/08/22, 15, 16/09/22 , DURATION : 42 DAYS
     Dates: start: 20220805, end: 20220916
  4. CISPLATIN [Suspect]
     Active Substance: CISPLATIN
     Indication: Neuroblastoma
     Dosage: 50 MG/DIE 26/07, 16/08, 05, 26/09/22 , DURATION :  62 DAYS
     Dates: start: 20220726, end: 20220926
  5. MESNA [Concomitant]
     Active Substance: MESNA
     Indication: Chemotherapy toxicity attenuation
     Dosage: 130 MG IN DATA 5/08/22 ,UNIT DOSE : 130 MG
     Dates: start: 20220805, end: 20220805
  6. DECADRON [Concomitant]
     Active Substance: DEXAMETHASONE
     Indication: Product used for unknown indication
     Dosage: DURATION :  2 DAYS
     Dates: start: 20220805, end: 20220807
  7. FILGRASTIM [Concomitant]
     Active Substance: FILGRASTIM
     Indication: Product used for unknown indication
     Dosage: 140 MCG IV 1 VV/DAY FROM 09/30 TO 10/13/2022 , DURATION : 13 DAYS
     Dates: start: 20220930, end: 20221013

REACTIONS (5)
  - Febrile neutropenia [Recovered/Resolved]
  - Klebsiella infection [Recovered/Resolved]
  - Pancytopenia [Not Recovered/Not Resolved]
  - Anaemia [Recovering/Resolving]
  - Vomiting [Recovered/Resolved]

NARRATIVE: CASE EVENT DATE: 20220801
